FAERS Safety Report 8715311 (Version 2)
Quarter: 2013Q1

REPORT INFORMATION
  Report Type: Spontaneous
  Country: US (occurrence: US)
  Receive Date: 20120809
  Receipt Date: 20130123
  Transmission Date: 20140127
  Serious: Yes (Other)
  Sender: FDA-Public Use
  Company Number: US-ASTRAZENECA-2012SE54245

PATIENT
  Age: 82 Year
  Sex: Female

DRUGS (11)
  1. ZESTRIL [Suspect]
     Route: 048
  2. TOPROL XL [Suspect]
     Indication: CARDIAC DISORDER
     Dosage: METOPROLOL
     Route: 048
  3. TOPROL XL [Suspect]
     Indication: BLOOD PRESSURE
     Dosage: METOPROLOL
     Route: 048
  4. TOPROL XL [Suspect]
     Indication: CARDIAC DISORDER
     Route: 048
  5. TOPROL XL [Suspect]
     Indication: BLOOD PRESSURE
     Route: 048
  6. ASA [Suspect]
     Route: 048
  7. TYLENOL [Suspect]
     Route: 065
  8. TIKOSYN [Suspect]
     Route: 048
  9. DIGOXIN [Suspect]
     Route: 065
  10. LOSARTAN [Suspect]
     Route: 065
  11. SPIRONOLACTONE [Suspect]
     Route: 065

REACTIONS (13)
  - Heart rate increased [Unknown]
  - Blindness unilateral [Unknown]
  - Facial bones fracture [Unknown]
  - Fall [Unknown]
  - Cerebral haemorrhage [Unknown]
  - Eye haemorrhage [Unknown]
  - Malaise [Unknown]
  - Cataract [Unknown]
  - Gait disturbance [Unknown]
  - Stress [Unknown]
  - Drug hypersensitivity [Unknown]
  - Fatigue [Unknown]
  - Dizziness [Unknown]
